FAERS Safety Report 10073059 (Version 4)
Quarter: 2014Q2

REPORT INFORMATION
  Report Type: Report from Study
  Country: JP (occurrence: JP)
  Receive Date: 20140411
  Receipt Date: 20140603
  Transmission Date: 20141212
  Serious: Yes (Hospitalization, Other)
  Sender: FDA-Public Use
  Company Number: PHHY2013JP156256

PATIENT
  Age: 64 Year
  Sex: Male

DRUGS (4)
  1. GLIVEC [Suspect]
     Indication: CHRONIC MYELOID LEUKAEMIA
     Dosage: 400 MG, DAILY
     Route: 048
     Dates: start: 200504, end: 201204
  2. GLIVEC [Suspect]
     Dosage: 400 MG, DAILY
     Route: 048
     Dates: start: 20120713
  3. TOUGHMAC E [Concomitant]
     Dosage: UNK UKN, UNK
     Route: 048
  4. FAMOTIDINE [Concomitant]
     Dosage: UNK UKN, UNK
     Route: 048

REACTIONS (4)
  - Gastric cancer [Recovered/Resolved]
  - Second primary malignancy [Recovered/Resolved]
  - Gastrointestinal disorder [Unknown]
  - Chronic gastritis [Recovering/Resolving]
